FAERS Safety Report 20922946 (Version 15)
Quarter: 2024Q3

REPORT INFORMATION
  Report Type: Report from Study
  Country: CA (occurrence: CA)
  Receive Date: 20220607
  Receipt Date: 20240813
  Transmission Date: 20241017
  Serious: Yes (Hospitalization, Other)
  Sender: TAKEDA
  Company Number: CA-TAKEDA-2022TUS037195

PATIENT
  Age: 55 Year
  Sex: Female

DRUGS (24)
  1. VEDOLIZUMAB [Suspect]
     Active Substance: VEDOLIZUMAB
     Indication: Crohn^s disease
     Dosage: 300 MILLIGRAM
     Route: 042
     Dates: start: 20200929
  2. VEDOLIZUMAB [Suspect]
     Active Substance: VEDOLIZUMAB
     Dosage: 300 MILLIGRAM
     Route: 042
     Dates: start: 20230110
  3. VEDOLIZUMAB [Suspect]
     Active Substance: VEDOLIZUMAB
     Dosage: 300 MILLIGRAM
     Route: 042
  4. VEDOLIZUMAB [Suspect]
     Active Substance: VEDOLIZUMAB
     Dosage: 300 MILLIGRAM
     Route: 042
  5. VEDOLIZUMAB [Suspect]
     Active Substance: VEDOLIZUMAB
     Dosage: 300 MILLIGRAM
     Route: 042
  6. VEDOLIZUMAB [Suspect]
     Active Substance: VEDOLIZUMAB
     Dosage: 300 MILLIGRAM
     Route: 042
  7. VEDOLIZUMAB [Suspect]
     Active Substance: VEDOLIZUMAB
     Dosage: 300 MILLIGRAM
     Route: 042
  8. VEDOLIZUMAB [Suspect]
     Active Substance: VEDOLIZUMAB
     Dosage: 300 MILLIGRAM
     Route: 042
  9. VEDOLIZUMAB [Suspect]
     Active Substance: VEDOLIZUMAB
     Dosage: 300 MILLIGRAM
     Route: 042
  10. METHYLCOBALAMIN [Concomitant]
     Active Substance: METHYLCOBALAMIN
     Dosage: UNK
     Route: 048
  11. PANTOPRAZOLE [Concomitant]
     Active Substance: PANTOPRAZOLE
     Dosage: 40 MILLIGRAM
     Route: 048
  12. RAMIPRIL [Concomitant]
     Active Substance: RAMIPRIL
     Dosage: 2.5 MILLIGRAM
     Route: 048
  13. RAMIPRIL [Concomitant]
     Active Substance: RAMIPRIL
     Dosage: 5 MILLIGRAM
     Route: 048
  14. SYNTHROID [Concomitant]
     Active Substance: LEVOTHYROXINE SODIUM
     Dosage: 0.125 MILLIGRAM
     Route: 048
  15. BASAGLAR [Concomitant]
     Active Substance: INSULIN GLARGINE
     Dosage: 16 INTERNATIONAL UNIT
     Route: 058
  16. FLUOXETINE [Concomitant]
     Active Substance: FLUOXETINE HYDROCHLORIDE
     Dosage: 30 MILLIGRAM
     Route: 048
  17. FOLIC ACID [Concomitant]
     Active Substance: FOLIC ACID
     Dosage: UNK
     Route: 048
  18. GABAPENTIN [Concomitant]
     Active Substance: GABAPENTIN
     Dosage: 300 MILLIGRAM
     Route: 048
  19. MAGNESIUM [Concomitant]
     Active Substance: MAGNESIUM
     Dosage: UNK
     Route: 048
  20. METFORMIN [Concomitant]
     Active Substance: METFORMIN HYDROCHLORIDE
     Dosage: 500 MILLIGRAM
     Route: 048
  21. NORTRIPTYLINE [Concomitant]
     Active Substance: NORTRIPTYLINE
     Dosage: 25 MILLIGRAM
     Route: 048
  22. NOVORAPID [Concomitant]
     Active Substance: INSULIN ASPART
     Dosage: UNK
     Route: 058
  23. METHOTREXATE [Concomitant]
     Active Substance: METHOTREXATE
     Dosage: 10 MILLIGRAM
     Route: 048
  24. VITAMIN D [Concomitant]
     Active Substance: VITAMIN D NOS
     Dosage: UNK
     Route: 048

REACTIONS (15)
  - Rectal cancer [Unknown]
  - Crohn^s disease [Unknown]
  - Lung carcinoma cell type unspecified stage IV [Unknown]
  - Metastases to lung [Unknown]
  - Dehydration [Unknown]
  - Faecal volume decreased [Unknown]
  - Abdominal pain [Unknown]
  - Pallor [Unknown]
  - Drug level decreased [Unknown]
  - Blood magnesium decreased [Unknown]
  - Abdominal neoplasm [Unknown]
  - Weight decreased [Unknown]
  - Chest pain [Unknown]
  - Vomiting [Unknown]
  - Nausea [Unknown]

NARRATIVE: CASE EVENT DATE: 20230221
